FAERS Safety Report 7313611-0 (Version None)
Quarter: 2011Q1

REPORT INFORMATION
  Report Type: 
  Country: None (occurrence: None)
  Receive Date: 20110225
  Receipt Date: 20110216
  Transmission Date: 20110831
  Serious: Yes (Other)
  Sender: FDA-Public Use
  Company Number: US-PERRIGO-11US001120

PATIENT
  Sex: Female
  Weight: 126.98 kg

DRUGS (5)
  1. ASTHMA MEDICATION, UNSPECIFIED [Concomitant]
     Indication: ASTHMA
     Dosage: UNK
     Route: 055
  2. APAP PM GLCP 829 [Suspect]
     Indication: INSOMNIA
     Dosage: UNK, PRN
     Route: 048
     Dates: start: 19980101
  3. APAP PM GLCP 829 [Suspect]
     Indication: NASOPHARYNGITIS
     Dosage: 2 TABLETS NIGHTLY
     Route: 048
     Dates: start: 20110206, end: 20110213
  4. APAP PM GLCP 829 [Suspect]
     Indication: MYALGIA
  5. PERCOCET [Concomitant]
     Indication: PAIN
     Dosage: UNK
     Route: 048

REACTIONS (6)
  - FACIAL PAIN [None]
  - ERYTHEMA [None]
  - INSOMNIA [None]
  - SWELLING FACE [None]
  - DRUG INEFFECTIVE [None]
  - TREMOR [None]
